FAERS Safety Report 22041781 (Version 1)
Quarter: 2023Q1

REPORT INFORMATION
  Report Type: Spontaneous
  Country: US (occurrence: US)
  Receive Date: 20230227
  Receipt Date: 20230227
  Transmission Date: 20230417
  Serious: Yes (Other)
  Sender: FDA-Public Use
  Company Number: US-BAYER-2023A021492

PATIENT
  Sex: Male

DRUGS (1)
  1. MIRALAX [Suspect]
     Active Substance: POLYETHYLENE GLYCOL 3350
     Indication: Gastrointestinal disorder
     Dosage: UNK
     Route: 048

REACTIONS (5)
  - Haematochezia [Unknown]
  - Diarrhoea [Unknown]
  - Dyschezia [Unknown]
  - Incorrect dose administered [Unknown]
  - Off label use [None]
